FAERS Safety Report 8790167 (Version 1)
Quarter: 2012Q4

REPORT INFORMATION
  Report Type: 
  Country: US (occurrence: US)
  Receive Date: 20120917
  Receipt Date: 20120917
  Transmission Date: 20130627
  Serious: Yes (Hospitalization)
  Sender: FDA-Public Use
  Company Number: US-BRISTOL-MYERS SQUIBB COMPANY-16941874

PATIENT
  Age: 53 Year
  Sex: Male
  Weight: 109 kg

DRUGS (1)
  1. SPRYCEL [Suspect]
     Indication: CHRONIC MYELOID LEUKAEMIA
     Dates: start: 20120808

REACTIONS (5)
  - Pulmonary oedema [Unknown]
  - Chest pain [Unknown]
  - Splenomegaly [Unknown]
  - Fatigue [Unknown]
  - Diarrhoea [Recovering/Resolving]
